FAERS Safety Report 21188249 (Version 1)
Quarter: 2022Q3

REPORT INFORMATION
  Report Type: Report from Study
  Country: DE (occurrence: DE)
  Receive Date: 20220809
  Receipt Date: 20220809
  Transmission Date: 20221026
  Serious: Yes (Hospitalization)
  Sender: FDA-Public Use
  Company Number: DE-ABBVIE-22K-062-4494198-00

PATIENT
  Age: 71 Year
  Sex: Female

DRUGS (7)
  1. HUMIRA [Suspect]
     Active Substance: ADALIMUMAB
     Indication: Rheumatoid arthritis
     Route: 058
     Dates: start: 201605, end: 201611
  2. TRUXIMA [Concomitant]
     Active Substance: RITUXIMAB-ABBS
     Indication: Rheumatoid arthritis
     Dates: start: 201801
  3. MABTHERA [Concomitant]
     Active Substance: RITUXIMAB
     Indication: Rheumatoid arthritis
     Dates: start: 201612
  4. MABTHERA [Concomitant]
     Active Substance: RITUXIMAB
     Dates: start: 201706
  5. RITUXIMAB [Concomitant]
     Active Substance: RITUXIMAB
     Indication: Rheumatoid arthritis
     Dates: start: 201808
  6. RITUXIMAB [Concomitant]
     Active Substance: RITUXIMAB
     Dates: start: 201906
  7. RITUXIMAB [Concomitant]
     Active Substance: RITUXIMAB
     Dates: start: 202007

REACTIONS (3)
  - Lung disorder [Unknown]
  - Reactive gastropathy [Unknown]
  - Pyelonephritis [Unknown]

NARRATIVE: CASE EVENT DATE: 20210521
